FAERS Safety Report 9631233 (Version 7)
Quarter: 2013Q4

REPORT INFORMATION
  Report Type: Report from Study
  Country: DE (occurrence: DE)
  Receive Date: 20131018
  Receipt Date: 20131119
  Transmission Date: 20140711
  Serious: Yes (Hospitalization)
  Sender: FDA-Public Use
  Company Number: PHHO2013DE013022

PATIENT
  Sex: 0

DRUGS (17)
  1. PLACEBO [Suspect]
     Indication: PEMPHIGOID
     Dosage: UNK
     Route: 058
     Dates: start: 20130920
  2. PLACEBO [Suspect]
     Dosage: UNK
     Route: 058
     Dates: start: 20131004
  3. PREDNISOLONE [Concomitant]
     Indication: PEMPHIGOID
     Dosage: 20 MG, QD
     Route: 048
     Dates: start: 20130913
  4. PANTOPRAZOLE [Concomitant]
     Indication: GASTRIC ULCER
     Dosage: 40 MG, QD
     Route: 048
     Dates: start: 20130913
  5. CALCIUM + VITAMIN D [Concomitant]
     Indication: OSTEOPOROSIS PROPHYLAXIS
     Dosage: 1000 / 880
     Route: 048
     Dates: start: 20130913
  6. DESLORATADINE [Concomitant]
     Indication: PRURITUS
     Dosage: 5 MG, BID
     Route: 048
     Dates: start: 20130913
  7. TAVEGIL [Concomitant]
     Indication: PRURITUS
     Dosage: 1 MG, BID
     Route: 048
     Dates: start: 20130913
  8. L-THYROXINE [Concomitant]
     Indication: HYPOTHYROIDISM
     Dosage: 50 MG, BID
     Route: 048
  9. AMLODIPINE [Concomitant]
     Indication: HYPERTENSION
     Dosage: 5 MG, BID
     Route: 048
     Dates: start: 20130911
  10. BISOPROLOL [Concomitant]
     Indication: HYPERTENSION
     Dosage: 5 MG, BID
  11. HYDROCHLOROTHIAZIDE [Concomitant]
     Indication: HYPERTENSION
     Dosage: 25 MG, BID
     Route: 048
  12. ASS [Concomitant]
     Indication: CARDIOVASCULAR DISORDER
     Dosage: 100 UG, UNK
     Route: 048
  13. SYMBICORT [Concomitant]
     Indication: CHRONIC OBSTRUCTIVE PULMONARY DISEASE
     Dosage: 220/9
  14. SALBUTAMOL [Concomitant]
     Indication: CHRONIC OBSTRUCTIVE PULMONARY DISEASE
     Dosage: UNK
  15. MG [Concomitant]
     Indication: MUSCLE SPASMS
     Dosage: AS REQUIRED
     Route: 048
  16. VICODIN [Concomitant]
     Indication: VERTIGO
     Dosage: AS REQUIRED
     Route: 048
  17. SPIRIVA [Concomitant]
     Indication: CHRONIC OBSTRUCTIVE PULMONARY DISEASE
     Dosage: 18 UG, UNK

REACTIONS (1)
  - Cardiac failure [Not Recovered/Not Resolved]
